FAERS Safety Report 10274525 (Version 2)
Quarter: 2014Q4

REPORT INFORMATION
  Report Type: Spontaneous
  Country: US (occurrence: US)
  Receive Date: 20140702
  Receipt Date: 20141008
  Transmission Date: 20150528
  Serious: Yes (Hospitalization, Other)
  Sender: FDA-Public Use
  Company Number: US-009507513-1407USA001026

PATIENT
  Sex: Female
  Weight: 72.56 kg

DRUGS (1)
  1. NUVARING [Suspect]
     Active Substance: ETHINYL ESTRADIOL\ETONOGESTREL
     Indication: CONTRACEPTION
     Dosage: 0.120MG/0.015MG PER DAY
     Route: 067
     Dates: start: 201204, end: 201206

REACTIONS (15)
  - Hemiparesis [Unknown]
  - Cholecystectomy [Unknown]
  - Hypercholesterolaemia [Unknown]
  - Hypoacusis [Unknown]
  - Cerebrovascular accident [Unknown]
  - Bladder dysfunction [Unknown]
  - Dizziness [Unknown]
  - Constipation [Unknown]
  - Depression [Unknown]
  - Aphasia [Unknown]
  - Nocturia [Unknown]
  - Urinary tract infection [Unknown]
  - Functional gastrointestinal disorder [Unknown]
  - Anxiety disorder [Unknown]
  - Gait disturbance [Unknown]

NARRATIVE: CASE EVENT DATE: 20120616
